FAERS Safety Report 6847567-1 (Version None)
Quarter: 2010Q3

REPORT INFORMATION
  Report Type: 
  Country: None (occurrence: None)
  Receive Date: 20100716
  Receipt Date: 20100706
  Transmission Date: 20110219
  Serious: Yes (Hospitalization, Disabling, Other)
  Sender: FDA-Public Use
  Company Number: NO-PFIZER INC-2010084338

PATIENT
  Sex: Male
  Weight: 3.28 kg

DRUGS (1)
  1. CYTOTEC [Suspect]
     Indication: LABOUR INDUCTION
     Dosage: 50 UG, SINGLE
     Route: 064
     Dates: start: 20010625, end: 20010625

REACTIONS (4)
  - CEREBRAL HAEMORRHAGE [None]
  - CEREBRAL PALSY [None]
  - DRUG EXPOSURE DURING PREGNANCY [None]
  - HYPERBILIRUBINAEMIA [None]
